FAERS Safety Report 12902347 (Version 2)
Quarter: 2016Q4

REPORT INFORMATION
  Report Type: Spontaneous
  Country: GB (occurrence: GB)
  Receive Date: 20161102
  Receipt Date: 20161114
  Transmission Date: 20170207
  Serious: Yes (Other)
  Sender: FDA-Public Use
  Company Number: GB-ACCORD-045193

PATIENT
  Age: 67 Year
  Sex: Female

DRUGS (3)
  1. RAMIPRIL. [Suspect]
     Active Substance: RAMIPRIL
     Indication: HYPERTENSION
     Dosage: INITIALLY AT 2.5 MG DAILY, LATER THE DOSE WAS INCREASED TO 5 MG DAILY AND THEN 10 MG DAI
     Dates: start: 201607, end: 201609
  2. THYROXINE [Concomitant]
     Active Substance: LEVOTHYROXINE
  3. BISOPROLOL [Concomitant]
     Active Substance: BISOPROLOL

REACTIONS (1)
  - Pneumonia [Recovering/Resolving]
